FAERS Safety Report 7910039-7 (Version None)
Quarter: 2011Q4

REPORT INFORMATION
  Report Type: 
  Country: None (occurrence: None)
  Receive Date: 20111111
  Receipt Date: 20111107
  Transmission Date: 20120403
  Serious: Yes (Hospitalization, Other)
  Sender: FDA-Public Use
  Company Number: DE-ABBOTT-11P-062-0702572-00

PATIENT
  Sex: Female

DRUGS (4)
  1. PANTOPRAZOLE [Suspect]
     Dates: start: 20110201, end: 20110301
  2. PANTOPRAZOLE [Suspect]
     Indication: PRODUCT USED FOR UNKNOWN INDICATION
     Dates: start: 20110201, end: 20110201
  3. ANTIHYPERTENSIVE DRUG [Concomitant]
     Indication: HYPERTENSION
  4. HUMIRA [Suspect]
     Indication: PSORIATIC ARTHROPATHY
     Route: 058
     Dates: start: 20091210

REACTIONS (5)
  - DRUG INTERACTION [None]
  - SKIN BURNING SENSATION [None]
  - CHOLELITHIASIS [None]
  - PSORIASIS [None]
  - PAIN OF SKIN [None]
